FAERS Safety Report 7304207-5 (Version None)
Quarter: 2011Q1

REPORT INFORMATION
  Report Type: 
  Country: None (occurrence: None)
  Receive Date: 20110221
  Receipt Date: 20110207
  Transmission Date: 20110831
  Serious: Yes (Hospitalization, Other)
  Sender: FDA-Public Use
  Company Number: US-BAYER-201025974NA

PATIENT
  Sex: Female
  Weight: 90.703 kg

DRUGS (20)
  1. ZANTAC [Concomitant]
     Indication: PRODUCT USED FOR UNKNOWN INDICATION
     Dosage: 150 MG, BID
     Dates: start: 20080130
  2. BUSPIRONE [Concomitant]
     Indication: PRODUCT USED FOR UNKNOWN INDICATION
     Dosage: UNK
     Dates: start: 20080219
  3. CYCLOBENZAPRINE [Concomitant]
  4. BACTRIM [Concomitant]
     Dosage: UNK UNK, BID
  5. ZOLOFT [Concomitant]
     Indication: PRODUCT USED FOR UNKNOWN INDICATION
     Dosage: DAILY DOSE -1 MG
     Dates: start: 20071029
  6. LORTAB [Concomitant]
     Indication: PRODUCT USED FOR UNKNOWN INDICATION
     Dosage: 7.5 MG, BID
     Dates: start: 20080130, end: 20080407
  7. NAPROXEN [Concomitant]
     Indication: PRODUCT USED FOR UNKNOWN INDICATION
     Dosage: 500 MG, PRN
     Dates: start: 20080331, end: 20080407
  8. HYDROCODONE [Concomitant]
     Indication: PRODUCT USED FOR UNKNOWN INDICATION
     Dosage: UNK
     Dates: start: 20080226
  9. PIROXICAM [NICOTINAMIDE,PIROXICAM] [Concomitant]
     Indication: PRODUCT USED FOR UNKNOWN INDICATION
     Dosage: UNK
     Dates: start: 20080923
  10. PIROXICAM [NICOTINAMIDE,PIROXICAM] [Concomitant]
     Dosage: UNK
     Dates: start: 20090116
  11. CIPROFLOXACIN [Concomitant]
     Indication: PRODUCT USED FOR UNKNOWN INDICATION
     Dosage: 500 UNK, UNK
     Route: 048
     Dates: start: 20080226
  12. OXYCODONE AND ACETAMINOPHEN [Concomitant]
     Indication: PRODUCT USED FOR UNKNOWN INDICATION
     Dosage: UNK
     Dates: start: 20080331
  13. PIROXICAM [NICOTINAMIDE,PIROXICAM] [Concomitant]
     Dosage: UNK
     Dates: start: 20081216
  14. PIROXICAM [NICOTINAMIDE,PIROXICAM] [Concomitant]
     Dosage: UNK
     Dates: start: 20090219
  15. UNCODEABLE ^UNCLASSIFIABLE^ [Concomitant]
     Dosage: UNK UNK, TID
     Dates: end: 20080325
  16. PERCOCET [Concomitant]
     Dosage: UNK UNK, PRN
     Dates: end: 20080405
  17. YASMIN [Suspect]
     Dosage: UNK UNK, UNK
     Route: 048
     Dates: start: 20071101, end: 20080401
  18. YAZ [Suspect]
     Indication: CONTRACEPTION
     Dosage: UNK, QD
     Dates: end: 20080408
  19. BUSPAR [Concomitant]
     Dosage: 15 MG, BID
  20. M.V.I. [Concomitant]
     Dosage: UNK UNK, QD
     Dates: end: 20080325

REACTIONS (8)
  - NAUSEA [None]
  - DYSPEPSIA [None]
  - VOMITING [None]
  - FAT INTOLERANCE [None]
  - ABDOMINAL PAIN UPPER [None]
  - ABDOMINAL PAIN [None]
  - CHOLELITHIASIS [None]
  - ABDOMINAL TENDERNESS [None]
